FAERS Safety Report 8394186-4 (Version None)
Quarter: 2012Q2

REPORT INFORMATION
  Report Type: 
  Country: None (occurrence: None)
  Receive Date: 20120530
  Receipt Date: 20120522
  Transmission Date: 20120825
  Serious: Yes (Other)
  Sender: FDA-Public Use
  Company Number: DE-B.I. PHARMACEUTICALS,INC./RIDGEFIELD-2012-DE-01181DE

PATIENT
  Sex: Male
  Weight: 92 kg

DRUGS (5)
  1. METOPROLOL SUCCINATE [Concomitant]
  2. PRADAXA [Suspect]
     Indication: ATRIAL FIBRILLATION
     Dosage: 300 MG
     Route: 048
     Dates: start: 20110401
  3. INSPAR [Concomitant]
     Dosage: 25 MG
  4. SIMVASTATIN [Concomitant]
     Dosage: 20 MG
  5. LYRICA [Concomitant]
     Dosage: 150 MG

REACTIONS (3)
  - CEREBRAL ARTERY EMBOLISM [None]
  - CEREBROVASCULAR ACCIDENT [None]
  - MONOPLEGIA [None]
